FAERS Safety Report 6554101-2 (Version None)
Quarter: 2010Q1

REPORT INFORMATION
  Report Type: 
  Country: None (occurrence: None)
  Receive Date: 20100125
  Receipt Date: 20100125
  Transmission Date: 20100710
  Serious: Yes (Disabling, Other)
  Sender: FDA-Public Use
  Company Number: None

PATIENT
  Age: 40 Year
  Sex: Female
  Weight: 73.4827 kg

DRUGS (1)
  1. TOPAMAX [Suspect]
     Indication: MIGRAINE PROPHYLAXIS
     Dosage: 1 TABLET DAILY PO
     Route: 048
     Dates: start: 20070705, end: 20090901

REACTIONS (4)
  - EMOTIONAL DISTRESS [None]
  - MASS [None]
  - MIGRAINE [None]
  - SCAR [None]
